FAERS Safety Report 9695954 (Version 2)
Quarter: 2013Q4

REPORT INFORMATION
  Report Type: Spontaneous
  Country: IT (occurrence: IT)
  Receive Date: 20131119
  Receipt Date: 20131206
  Transmission Date: 20140711
  Serious: Yes (Hospitalization)
  Sender: FDA-Public Use
  Company Number: IT-TEVA-444495ISR

PATIENT
  Age: 85 Year
  Sex: Female

DRUGS (7)
  1. IBUPROFENE [Suspect]
     Indication: BACK PAIN
     Dosage: 200 MILLIGRAM DAILY;
     Route: 048
     Dates: start: 20130401, end: 20130516
  2. COUMADIN 5MG [Suspect]
     Indication: AORTIC VALVE DISEASE
     Route: 048
     Dates: start: 20120516, end: 20130516
  3. LANOXIN 0.125 MG [Concomitant]
  4. GLUCOPHAGE 850 MG [Concomitant]
  5. LASIX 25 MG [Concomitant]
  6. QUARK 5 MG [Concomitant]
  7. SIMVASTATINA [Concomitant]

REACTIONS (1)
  - Haemorrhage [Recovered/Resolved]
